FAERS Safety Report 22134478 (Version 1)
Quarter: 2023Q1

REPORT INFORMATION
  Report Type: Spontaneous
  Country: RU (occurrence: None)
  Receive Date: 20230324
  Receipt Date: 20230324
  Transmission Date: 20230417
  Serious: Yes (Other)
  Sender: FDA-Public Use
  Company Number: 2023A067616

PATIENT
  Sex: Female

DRUGS (2)
  1. PULMICORT TURBUHALER [Suspect]
     Active Substance: BUDESONIDE
     Dosage: 1 NEBULA DOSED 0.5 MG, TWICE PER DAY, FOR 2 DAYS
     Route: 055
  2. SALINE [Concomitant]
     Active Substance: SODIUM CHLORIDE

REACTIONS (2)
  - Asphyxia [Recovered/Resolved]
  - Cough [Recovered/Resolved]
